FAERS Safety Report 17268426 (Version 1)
Quarter: 2020Q1

REPORT INFORMATION
  Report Type: Spontaneous
  Country: CA (occurrence: CA)
  Receive Date: 20200114
  Receipt Date: 20200114
  Transmission Date: 20200409
  Serious: Yes (Other)
  Sender: FDA-Public Use
  Company Number: CA-TEVA-2019-CA-1099388

PATIENT
  Age: 50 Year
  Sex: Female

DRUGS (15)
  1. VENTOLIN [Concomitant]
     Active Substance: ALBUTEROL SULFATE
     Indication: PRODUCT USED FOR UNKNOWN INDICATION
     Dosage: 9 DOSAGE FORMS DAILY;
     Route: 048
  2. HYDROCORTISONE VALERATE. [Suspect]
     Active Substance: HYDROCORTISONE VALERATE
     Indication: RASH
  3. REACTINE [Concomitant]
     Indication: PRODUCT USED FOR UNKNOWN INDICATION
     Dosage: 2 DOSAGE FORMS DAILY;
     Route: 048
  4. SPIRIVA [Concomitant]
     Active Substance: TIOTROPIUM BROMIDE MONOHYDRATE
     Indication: PRODUCT USED FOR UNKNOWN INDICATION
     Dosage: 2 DOSAGE FORMS DAILY;
     Route: 048
  5. HYDROCORTISONE VALERATE. [Suspect]
     Active Substance: HYDROCORTISONE VALERATE
     Indication: EYELID OEDEMA
  6. HYDROCORTISONE VALERATE. [Suspect]
     Active Substance: HYDROCORTISONE VALERATE
     Indication: PRURITUS
  7. XOLAIR [Suspect]
     Active Substance: OMALIZUMAB
     Route: 058
  8. MORPHINE [Suspect]
     Active Substance: MORPHINE
     Indication: BACK DISORDER
     Route: 065
  9. XOLAIR [Suspect]
     Active Substance: OMALIZUMAB
     Indication: ASTHMA
     Route: 058
  10. HYDROCORTISONE VALERATE. [Suspect]
     Active Substance: HYDROCORTISONE VALERATE
     Indication: SKIN EXFOLIATION
  11. HYDROCORTISONE VALERATE. [Suspect]
     Active Substance: HYDROCORTISONE VALERATE
     Indication: ERYTHEMA
     Route: 061
  12. XOLAIR [Suspect]
     Active Substance: OMALIZUMAB
     Route: 058
  13. XOLAIR [Suspect]
     Active Substance: OMALIZUMAB
     Route: 058
  14. XOLAIR [Suspect]
     Active Substance: OMALIZUMAB
     Route: 058
  15. SYMBICORT [Concomitant]
     Active Substance: BUDESONIDE\FORMOTEROL FUMARATE DIHYDRATE
     Indication: PRODUCT USED FOR UNKNOWN INDICATION
     Dosage: 6 DOSAGE FORMS DAILY;
     Route: 055

REACTIONS (19)
  - Chest discomfort [Not Recovered/Not Resolved]
  - Wound [Not Recovered/Not Resolved]
  - Dry throat [Not Recovered/Not Resolved]
  - Oropharyngeal spasm [Not Recovered/Not Resolved]
  - Rash [Not Recovered/Not Resolved]
  - Skin exfoliation [Not Recovered/Not Resolved]
  - Eyelid oedema [Not Recovered/Not Resolved]
  - Skin atrophy [Not Recovered/Not Resolved]
  - Erythema [Not Recovered/Not Resolved]
  - Haemorrhage [Not Recovered/Not Resolved]
  - Malaise [Not Recovered/Not Resolved]
  - Dysphagia [Not Recovered/Not Resolved]
  - Insomnia [Not Recovered/Not Resolved]
  - Drug hypersensitivity [Not Recovered/Not Resolved]
  - Pruritus [Not Recovered/Not Resolved]
  - Asthma [Not Recovered/Not Resolved]
  - Back disorder [Not Recovered/Not Resolved]
  - Ear haemorrhage [Not Recovered/Not Resolved]
  - Immediate post-injection reaction [Not Recovered/Not Resolved]
